FAERS Safety Report 13446347 (Version 1)
Quarter: 2017Q2

REPORT INFORMATION
  Report Type: Report from Study
  Country: KR (occurrence: KR)
  Receive Date: 20170417
  Receipt Date: 20170417
  Transmission Date: 20170830
  Serious: Yes (Death, Hospitalization)
  Sender: FDA-Public Use
  Company Number: KR-BAXTER-2017BAX016209

PATIENT
  Age: 64 Year
  Sex: Female

DRUGS (3)
  1. PHYSIONEAL 1.5% [Suspect]
     Active Substance: CALCIUM CHLORIDE\DEXTROSE\MAGNESIUM CHLORIDE\SODIUM CHLORIDE SOLUTION
     Indication: END STAGE RENAL DISEASE
     Route: 033
     Dates: end: 20170407
  2. PHYSIONEAL 2.5% [Suspect]
     Active Substance: CALCIUM CHLORIDE\DEXTROSE\MAGNESIUM CHLORIDE\SODIUM CHLORIDE SOLUTION
     Indication: END STAGE RENAL DISEASE
     Route: 033
     Dates: end: 20170407
  3. EXTRANEAL [Suspect]
     Active Substance: CALCIUM CHLORIDE\ICODEXTRIN\MAGNESIUM CHLORIDE\SODIUM CHLORIDE\SODIUM LACTATE
     Indication: END STAGE RENAL DISEASE
     Route: 033
     Dates: end: 20170407

REACTIONS (2)
  - Cardiac arrest [Fatal]
  - Haemoptysis [Unknown]

NARRATIVE: CASE EVENT DATE: 20170407
